FAERS Safety Report 25401879 (Version 2)
Quarter: 2025Q3

REPORT INFORMATION
  Report Type: Spontaneous
  Country: EU (occurrence: EU)
  Receive Date: 20250605
  Receipt Date: 20250724
  Transmission Date: 20251021
  Serious: Yes (Other)
  Sender: ELI LILLY AND COMPANY
  Company Number: EU-ELI_LILLY_AND_COMPANY-PL202505024876

PATIENT
  Sex: Female

DRUGS (1)
  1. MOUNJARO [Suspect]
     Active Substance: TIRZEPATIDE
     Indication: Product used for unknown indication
     Route: 065

REACTIONS (5)
  - Erythema [Unknown]
  - Skin burning sensation [Unknown]
  - Eczema vesicular [Recovering/Resolving]
  - Hypersensitivity [Unknown]
  - Swelling face [Recovered/Resolved]
